FAERS Safety Report 8801694 (Version 4)
Quarter: 2015Q2

REPORT INFORMATION
  Report Type: Report from Study
  Country: US (occurrence: US)
  Receive Date: 20120921
  Receipt Date: 20150630
  Transmission Date: 20150821
  Serious: Yes (Death, Hospitalization)
  Sender: FDA-Public Use
  Company Number: US-ROCHE-1124922

PATIENT
  Sex: Female

DRUGS (9)
  1. AREDIA [Concomitant]
     Active Substance: PAMIDRONATE DISODIUM
  2. AVASTIN [Suspect]
     Active Substance: BEVACIZUMAB
     Indication: BREAST CANCER FEMALE
     Route: 042
     Dates: start: 2006
  3. ALDACTONE (UNITED STATES) [Concomitant]
  4. ARANESP [Concomitant]
     Active Substance: DARBEPOETIN ALFA
     Route: 065
  5. BENADRYL [Concomitant]
     Active Substance: DIPHENHYDRAMINE HYDROCHLORIDE
     Route: 042
  6. CARBOPLATIN. [Concomitant]
     Active Substance: CARBOPLATIN
     Route: 042
  7. HERCEPTIN [Suspect]
     Active Substance: TRASTUZUMAB
     Indication: PRODUCT USED FOR UNKNOWN INDICATION
     Route: 042
  8. GEMZAR [Concomitant]
     Active Substance: GEMCITABINE HYDROCHLORIDE
     Route: 042
  9. LASIX [Concomitant]
     Active Substance: FUROSEMIDE

REACTIONS (19)
  - Ascites [Unknown]
  - Blood glucose decreased [Unknown]
  - Pruritus [Unknown]
  - Dysuria [Unknown]
  - Death [Fatal]
  - Hyperbilirubinaemia [Unknown]
  - Breath sounds abnormal [Unknown]
  - Hypokalaemia [Unknown]
  - Food intolerance [Unknown]
  - Tremor [Unknown]
  - Abdominal pain upper [Recovering/Resolving]
  - Haemorrhoids [Unknown]
  - Musculoskeletal discomfort [Recovering/Resolving]
  - Oedema peripheral [Unknown]
  - Liver function test abnormal [Unknown]
  - Haemoglobin decreased [Unknown]
  - Dyspnoea [Recovered/Resolved]
  - Fatigue [Unknown]
  - Off label use [Unknown]
